FAERS Safety Report 7270682-8 (Version None)
Quarter: 2011Q1

REPORT INFORMATION
  Report Type: 
  Country: None (occurrence: None)
  Receive Date: 20110202
  Receipt Date: 20110201
  Transmission Date: 20110831
  Serious: Yes (Hospitalization)
  Sender: FDA-Public Use
  Company Number: B0672371A

PATIENT
  Sex: Female
  Weight: 130 kg

DRUGS (4)
  1. NEXIUM [Concomitant]
     Indication: POSTOPERATIVE CARE
     Route: 065
     Dates: start: 20100817
  2. AUGMENTIN [Suspect]
     Dosage: 10G PER DAY
     Route: 042
     Dates: start: 20100817, end: 20100818
  3. ACUPAN [Concomitant]
     Indication: POSTOPERATIVE CARE
     Route: 065
     Dates: start: 20100817
  4. PERFALGAN [Concomitant]
     Indication: POSTOPERATIVE CARE
     Route: 065
     Dates: start: 20100817

REACTIONS (3)
  - ANURIA [None]
  - RENAL FAILURE ACUTE [None]
  - CRYSTALLURIA [None]
